FAERS Safety Report 5923855-8 (Version None)
Quarter: 2008Q4

REPORT INFORMATION
  Report Type: 
  Country: None (occurrence: None)
  Receive Date: 20081020
  Receipt Date: 20081008
  Transmission Date: 20090506
  Serious: Yes (Other)
  Sender: FDA-Public Use
  Company Number: PL-ROCHE-590826

PATIENT
  Sex: Female
  Weight: 64 kg

DRUGS (3)
  1. XELODA [Suspect]
     Indication: BREAST CANCER
     Dosage: IN TWO DIVIDED DOSES FOR 14 DAYS. THE CYCLE REPEATED EVERY 21 DAYS
     Route: 048
     Dates: start: 20030101, end: 20040618
  2. XELODA [Suspect]
     Dosage: DOSE REDUCED BY 25%
     Route: 048
     Dates: start: 20040618
  3. XELODA [Suspect]
     Dosage: IN TWO DIVIDED DOSES FOR 14 DAYS EVERY 28 DAYS.
     Route: 048
     Dates: end: 20080601

REACTIONS (3)
  - DISEASE PROGRESSION [None]
  - METASTASIS [None]
  - PALMAR-PLANTAR ERYTHRODYSAESTHESIA SYNDROME [None]
